FAERS Safety Report 11570282 (Version 1)
Quarter: 2015Q3

REPORT INFORMATION
  Report Type: Spontaneous
  Country: US (occurrence: US)
  Receive Date: 20150916
  Receipt Date: 20150916
  Transmission Date: 20151125
  Serious: No
  Sender: FDA-Public Use
  Company Number: US-ELI_LILLY_AND_COMPANY-US200909001016

PATIENT
  Age: 82 Year
  Sex: Female

DRUGS (4)
  1. FORTEO [Suspect]
     Active Substance: TERIPARATIDE
     Dosage: UNK, DAILY (1/D)
     Dates: start: 20070615
  2. LIPITOR [Concomitant]
     Active Substance: ATORVASTATIN CALCIUM
  3. FORTEO [Suspect]
     Active Substance: TERIPARATIDE
     Dosage: UNK, QOD
     Route: 065
  4. FORTEO [Suspect]
     Active Substance: TERIPARATIDE
     Dates: end: 20090616

REACTIONS (8)
  - Intentional device misuse [Recovered/Resolved]
  - Inappropriate schedule of drug administration [Unknown]
  - Blood potassium decreased [Unknown]
  - Treatment noncompliance [Recovered/Resolved]
  - Pain in extremity [Unknown]
  - Medication error [Unknown]
  - Bone pain [Recovered/Resolved]
  - Anxiety [Unknown]

NARRATIVE: CASE EVENT DATE: 200906
